FAERS Safety Report 5473136-4 (Version None)
Quarter: 2007Q3

REPORT INFORMATION
  Report Type: 
  Country: None (occurrence: None)
  Receive Date: 20070927
  Receipt Date: 20070911
  Transmission Date: 20080115
  Serious: Yes (Life-Threatening, Hospitalization, Other)
  Sender: FDA-Public Use
  Company Number: DSA_30636_2007

PATIENT
  Age: 73 Year
  Sex: Female

DRUGS (13)
  1. ENALAPRIL MALEATE [Suspect]
     Indication: DRUG USE FOR UNKNOWN INDICATION
     Dosage: (40 MG QD ORAL)
     Route: 048
     Dates: start: 19970821, end: 20070829
  2. METFORMIN (METFORMIN) 500 MG [Suspect]
     Indication: DRUG USE FOR UNKNOWN INDICATION
     Dosage: (500 MG TID ORAL)
     Route: 048
     Dates: start: 19960119, end: 20070829
  3. ACETAMINOPHEN [Concomitant]
  4. AMITRIPTYLINE HYDROCHLORIDE [Concomitant]
  5. ASPIRIN [Concomitant]
  6. ATENOLOL [Concomitant]
  7. DOXAZOSIN MESYLATE [Concomitant]
  8. IBUPROFEN [Concomitant]
  9. LEVOTHYROXINE SODIUM [Concomitant]
  10. QUININE SULFATE [Concomitant]
  11. SIMVASTATIN [Concomitant]
  12. TRAMADOL HCL [Concomitant]
  13. TRIMETHOPRIM [Concomitant]

REACTIONS (11)
  - BLOOD BICARBONATE DECREASED [None]
  - BLOOD CHLORIDE INCREASED [None]
  - BLOOD CREATININE INCREASED [None]
  - BLOOD POTASSIUM INCREASED [None]
  - BLOOD UREA INCREASED [None]
  - ELECTROCARDIOGRAM P WAVE ABNORMAL [None]
  - ELECTROCARDIOGRAM PR PROLONGATION [None]
  - FATIGUE [None]
  - HYPERKALAEMIA [None]
  - METABOLIC ACIDOSIS [None]
  - URINARY TRACT INFECTION [None]
